FAERS Safety Report 5850411-2 (Version None)
Quarter: 2008Q3

REPORT INFORMATION
  Report Type: 
  Country: None (occurrence: None)
  Receive Date: 20080819
  Receipt Date: 20080811
  Transmission Date: 20090109
  Serious: Yes (Other)
  Sender: FDA-Public Use
  Company Number: US-PFIZER INC-2008066962

PATIENT
  Sex: Female

DRUGS (3)
  1. XANAX [Suspect]
  2. VALIUM [Suspect]
  3. KLONOPIN [Suspect]

REACTIONS (3)
  - DRUG ABUSE [None]
  - DRUG SCREEN POSITIVE [None]
  - MYDRIASIS [None]
